FAERS Safety Report 10646378 (Version 5)
Quarter: 2015Q1

REPORT INFORMATION
  Report Type: Spontaneous
  Country: KR (occurrence: KR)
  Receive Date: 20141211
  Receipt Date: 20150203
  Transmission Date: 20150720
  Serious: Yes (Hospitalization)
  Sender: FDA-Public Use
  Company Number: KR-009507513-1412KOR004364

PATIENT
  Age: 63 Year
  Sex: Female

DRUGS (15)
  1. OVESTIN [Suspect]
     Active Substance: ESTRIOL
     Indication: ATROPHIC VULVOVAGINITIS
     Dosage: DAILY DOSE UNKNOWN, ONCE
     Route: 067
     Dates: start: 20141127, end: 20141128
  2. FEXADIN [Concomitant]
     Indication: PRODUCT USED FOR UNKNOWN INDICATION
     Route: 065
  3. GASMOTIN [Concomitant]
     Active Substance: MOSAPRIDE CITRATE
     Indication: DYSPEPSIA
     Dosage: UNK
     Dates: start: 20141123
  4. MOTILITONE [Concomitant]
     Active Substance: HERBALS
  5. PANTOLINE TABLETS [Concomitant]
     Indication: PRODUCT USED FOR UNKNOWN INDICATION
     Route: 065
  6. CURAN [Concomitant]
     Dosage: 50 MG, UNK
     Dates: start: 20141122
  7. GRANDPAZE F [Concomitant]
     Indication: DYSPEPSIA
     Dosage: TRIMEBUTINE MALEATE 100 MG, DEHYDROCHOLIC ACID 25 MG, BROMELAIN 50 MG, PANCREATIN 150 MG, AND SIMETH
     Route: 065
     Dates: start: 20141123
  8. FERRITOP [Concomitant]
     Indication: PRODUCT USED FOR UNKNOWN INDICATION
     Route: 065
  9. POLYGYNAX (NEOMYCIN SULFATE (+) NYSTATIN (+) POLYMYXIN B SULFATE) [Concomitant]
     Indication: PELVIC INFLAMMATORY DISEASE
     Dosage: NEOMYCIN SULFATE 50.2 MG, POLYMYXIN B SULFATE 35000IU, AND NYSTATIN 100000IU
     Route: 065
     Dates: start: 20141124
  10. OVESTIN [Suspect]
     Active Substance: ESTRIOL
     Dosage: 0.5 MG, ONCE
     Route: 067
     Dates: start: 20141125, end: 20141125
  11. BEECOM HEXA [Concomitant]
     Indication: DYSPEPSIA
     Dosage: NICOTINAMIDE 40 MG, VITAMIN BL 10 MG, VITAMIN BL2 10 MEG, VITAMIN B2 5.47 MG, VITAMIN B5 5 MG, AND D
     Dates: start: 20141123
  12. DOXYCYCLINE. [Concomitant]
     Active Substance: DOXYCYCLINE
     Indication: NEPHRITIS
     Dosage: UNK
     Dates: start: 20141124
  13. CALCIUM CHLORIDE (+) POTASSIUM CHLORIDE (+) SODIUM CHLORIDE (+) SODIUM [Concomitant]
     Dosage: UNK
     Dates: start: 20141122
  14. STILLEN [Concomitant]
     Indication: DYSPEPSIA
     Dosage: ARTEMISIA ASIATICA 95% ETHANOL EXT.
     Dates: start: 20141123
  15. ENAFON [Concomitant]
     Indication: PRODUCT USED FOR UNKNOWN INDICATION
     Dosage: ONE DOSE, UNK
     Route: 065
     Dates: start: 20141124

REACTIONS (3)
  - Pelvic pain [Recovered/Resolved]
  - Pyrexia [Recovered/Resolved]
  - Back pain [Recovered/Resolved]

NARRATIVE: CASE EVENT DATE: 20141125
